FAERS Safety Report 6226262-6 (Version None)
Quarter: 2009Q2

REPORT INFORMATION
  Report Type: 
  Country: None (occurrence: None)
  Receive Date: 20090612
  Receipt Date: 20090512
  Transmission Date: 20091009
  Serious: No
  Sender: FDA-Public Use
  Company Number: US-ABBOTT-09P-163-0573054-00

PATIENT
  Sex: Female
  Weight: 78.542 kg

DRUGS (5)
  1. HUMIRA [Suspect]
     Indication: RHEUMATOID ARTHRITIS
     Route: 058
     Dates: start: 20070101
  2. HUMIRA [Suspect]
     Indication: PSORIASIS
  3. METOTREXATE [Concomitant]
     Indication: ARTHRITIS
  4. FOLIC ACID [Concomitant]
     Indication: DRUG USE FOR UNKNOWN INDICATION
  5. 2 BLOOD PRESSURE MEDICATION [Concomitant]
     Indication: BLOOD PRESSURE

REACTIONS (1)
  - INJECTION SITE PAIN [None]
